FAERS Safety Report 6655968-X (Version None)
Quarter: 2010Q1

REPORT INFORMATION
  Report Type: 
  Country: None (occurrence: None)
  Receive Date: 20100329
  Receipt Date: 20100324
  Transmission Date: 20100710
  Serious: Yes (Death, Other)
  Sender: FDA-Public Use
  Company Number: PHHY2010JP18342

PATIENT
  Age: 67 Year
  Sex: Female

DRUGS (6)
  1. GLEEVEC [Suspect]
     Indication: CHRONIC MYELOID LEUKAEMIA
     Dosage: 200 MG/DAY
     Route: 048
  2. GLEEVEC [Suspect]
     Dosage: 300 MG/DAY
     Route: 048
  3. DOXORUBICIN HCL [Concomitant]
  4. VINCRISTINE [Concomitant]
  5. ARA-C [Concomitant]
  6. DAUNORUBICIN HCL [Concomitant]

REACTIONS (8)
  - BLAST CRISIS IN MYELOGENOUS LEUKAEMIA [None]
  - DEATH [None]
  - DRUG RESISTANCE [None]
  - ERYTHEMA MULTIFORME [None]
  - MYELOBLAST COUNT INCREASED [None]
  - PANCYTOPENIA [None]
  - PLATELET COUNT DECREASED [None]
  - RASH [None]
